FAERS Safety Report 6878704-0 (Version None)
Quarter: 2010Q3

REPORT INFORMATION
  Report Type: 
  Country: None (occurrence: None)
  Receive Date: 20100728
  Receipt Date: 20100720
  Transmission Date: 20110219
  Serious: Yes (Disabling)
  Sender: FDA-Public Use
  Company Number: B0667342A

PATIENT
  Age: 47 Year
  Sex: Female
  Weight: 70 kg

DRUGS (9)
  1. EPIVIR [Suspect]
     Indication: HIV INFECTION
     Route: 065
  2. ABACAVIR SULFATE AND LAMIVUDINE [Suspect]
     Indication: HIV INFECTION
     Route: 065
  3. VALTREX [Suspect]
     Indication: PRODUCT USED FOR UNKNOWN INDICATION
     Route: 065
  4. KALETRA [Concomitant]
  5. VIDEX [Concomitant]
  6. PREDNISOLONE [Concomitant]
  7. DARUNAVIR [Concomitant]
  8. RITONAVIR [Concomitant]
  9. PREDNISOLONE [Concomitant]
     Indication: CYTOMEGALOVIRUS INFECTION

REACTIONS (1)
  - BLOOD GLUCOSE INCREASED [None]
